FAERS Safety Report 8154356-7 (Version None)
Quarter: 2012Q1

REPORT INFORMATION
  Report Type: 
  Country: None (occurrence: None)
  Receive Date: 20120103
  Receipt Date: 20110829
  Transmission Date: 20120608
  Serious: No
  Sender: FDA-Public Use
  Company Number: AE-2011-001013

PATIENT
  Age: 52 Year
  Sex: Female

DRUGS (9)
  1. LORATADINE [Concomitant]
  2. VITAMIN D [Concomitant]
  3. CENTRUM SILVER (CENTRUM SILVER) [Concomitant]
  4. INCIVEK [Suspect]
     Dates: start: 20110715
  5. CALCIUM CARBONATE [Concomitant]
  6. CELEXA [Concomitant]
  7. RIBAVIRIN [Concomitant]
  8. PEGINTERFERON (PEGINTERFERON ALFA-2A) [Concomitant]
  9. NAPROXEN [Concomitant]

REACTIONS (1)
  - TREATMENT FAILURE [None]
